FAERS Safety Report 20824575 (Version 1)
Quarter: 2022Q2

REPORT INFORMATION
  Report Type: Spontaneous
  Country: US (occurrence: US)
  Receive Date: 20220513
  Receipt Date: 20220513
  Transmission Date: 20220720
  Serious: No
  Sender: FDA-Public Use
  Company Number: US-VIIV HEALTHCARE LIMITED-US2022AMR073140

PATIENT
  Sex: Male

DRUGS (6)
  1. RILPIVIRINE [Suspect]
     Active Substance: RILPIVIRINE
     Indication: HIV infection
     Dosage: 3 ML, Z 900/600 MG(EVERY 2 MONTHS)
     Route: 030
     Dates: start: 20220310
  2. RILPIVIRINE [Suspect]
     Active Substance: RILPIVIRINE
     Dosage: 3 ML, Z 900/600 MG(EVERY 2 MONTHS)
     Route: 030
     Dates: start: 20220422
  3. CABOTEGRAVIR [Suspect]
     Active Substance: CABOTEGRAVIR
     Indication: HIV infection
     Dosage: 3 ML, Z 900/600 MG(EVERY 2 MONTHS
     Route: 065
     Dates: start: 20220310
  4. CABOTEGRAVIR [Suspect]
     Active Substance: CABOTEGRAVIR
     Dosage: 3 ML, Z 900/600 MG(EVERY 2 MONTHS)
     Route: 065
     Dates: start: 20220422
  5. VOCABRIA [Concomitant]
     Active Substance: CABOTEGRAVIR SODIUM
     Dosage: UNK
     Route: 048
     Dates: start: 20220209
  6. EDURANT [Concomitant]
     Active Substance: RILPIVIRINE HYDROCHLORIDE
     Indication: HIV infection
     Dosage: UNK
     Route: 048
     Dates: start: 20220209

REACTIONS (2)
  - Blood HIV RNA increased [Unknown]
  - Inappropriate schedule of product administration [Unknown]

NARRATIVE: CASE EVENT DATE: 20220422
